FAERS Safety Report 9712270 (Version 2)
Quarter: 2013Q4

REPORT INFORMATION
  Report Type: Spontaneous
  Country: US (occurrence: US)
  Receive Date: 20131126
  Receipt Date: 20131126
  Transmission Date: 20140711
  Serious: Yes (Hospitalization)
  Sender: FDA-Public Use
  Company Number: US-BRISTOL-MYERS SQUIBB COMPANY-18853127

PATIENT
  Age: 55 Year
  Sex: Female

DRUGS (4)
  1. BYDUREON [Suspect]
     Indication: TYPE 2 DIABETES MELLITUS
     Dosage: DOSE: 15-JUL-2013
     Route: 058
     Dates: start: 2013
  2. METFORMIN [Concomitant]
  3. LANTUS [Concomitant]
  4. HUMALOG [Concomitant]

REACTIONS (6)
  - Blood glucose increased [Unknown]
  - Blood glucose decreased [Unknown]
  - Injection site haemorrhage [Unknown]
  - Injection site pain [Unknown]
  - Dysgeusia [Unknown]
  - Injection site extravasation [Unknown]
